FAERS Safety Report 24841424 (Version 3)
Quarter: 2025Q1

REPORT INFORMATION
  Report Type: Spontaneous
  Country: US (occurrence: US)
  Receive Date: 20250114
  Receipt Date: 20250222
  Transmission Date: 20250409
  Serious: No
  Sender: NEUROCRINE BIOSCIENCES
  Company Number: US-NEUROCRINE BIOSCIENCES INC.-2024NBI13205

PATIENT
  Age: 67 Year
  Sex: Female

DRUGS (2)
  1. INGREZZA [Suspect]
     Active Substance: VALBENAZINE
     Indication: Tardive dyskinesia
     Route: 048
     Dates: end: 202501
  2. INGREZZA [Suspect]
     Active Substance: VALBENAZINE
     Route: 065

REACTIONS (6)
  - Drug ineffective [Unknown]
  - Stress [Recovered/Resolved]
  - Depression [Recovering/Resolving]
  - Tremor [Recovered/Resolved]
  - Fatigue [Recovering/Resolving]
  - Drooling [Recovering/Resolving]
